FAERS Safety Report 25528351 (Version 1)
Quarter: 2025Q3

REPORT INFORMATION
  Report Type: Spontaneous
  Country: US (occurrence: US)
  Receive Date: 20250708
  Receipt Date: 20250708
  Transmission Date: 20251020
  Serious: No
  Sender: ABBVIE
  Company Number: US-ABBVIE-6360025

PATIENT
  Age: 25 Year

DRUGS (1)
  1. BOTOX COSMETIC [Suspect]
     Active Substance: ONABOTULINUMTOXINA
     Indication: Muscle hypertrophy
     Route: 065
     Dates: start: 20250610, end: 20250610

REACTIONS (5)
  - Feeling hot [Unknown]
  - Pain in jaw [Unknown]
  - Swelling face [Unknown]
  - Multiple use of single-use product [Unknown]
  - Product preparation error [Unknown]

NARRATIVE: CASE EVENT DATE: 20250101
